FAERS Safety Report 26118595 (Version 1)
Quarter: 2025Q4

REPORT INFORMATION
  Report Type: Spontaneous
  Country: CN (occurrence: CN)
  Receive Date: 20251203
  Receipt Date: 20251203
  Transmission Date: 20260118
  Serious: Yes (Hospitalization)
  Sender: BEIGENE
  Company Number: CN-BEONEMEDICINES-BGN-2025-021182

PATIENT
  Age: 37 Year
  Sex: Male
  Weight: 80 kg

DRUGS (12)
  1. TISLELIZUMAB [Suspect]
     Active Substance: TISLELIZUMAB
     Indication: Squamous cell carcinoma of the oral cavity
     Dosage: 200 MILLIGRAM
  2. TISLELIZUMAB [Suspect]
     Active Substance: TISLELIZUMAB
     Dosage: 200 MILLIGRAM
     Route: 041
  3. TISLELIZUMAB [Suspect]
     Active Substance: TISLELIZUMAB
     Dosage: 200 MILLIGRAM
     Route: 041
  4. TISLELIZUMAB [Suspect]
     Active Substance: TISLELIZUMAB
     Dosage: 200 MILLIGRAM
  5. PACLITAXEL [Suspect]
     Active Substance: PACLITAXEL
     Indication: Squamous cell carcinoma of the oral cavity
     Dosage: 0.4 GRAM
  6. PACLITAXEL [Suspect]
     Active Substance: PACLITAXEL
     Dosage: 0.4 GRAM
     Route: 041
  7. PACLITAXEL [Suspect]
     Active Substance: PACLITAXEL
     Dosage: 0.4 GRAM
     Route: 041
  8. PACLITAXEL [Suspect]
     Active Substance: PACLITAXEL
     Dosage: 0.4 GRAM
  9. CISPLATIN [Suspect]
     Active Substance: CISPLATIN
     Indication: Squamous cell carcinoma of the oral cavity
     Dosage: 60 MILLIGRAM
  10. CISPLATIN [Suspect]
     Active Substance: CISPLATIN
     Dosage: 60 MILLIGRAM
     Route: 041
  11. CISPLATIN [Suspect]
     Active Substance: CISPLATIN
     Dosage: 60 MILLIGRAM
     Route: 041
  12. CISPLATIN [Suspect]
     Active Substance: CISPLATIN
     Dosage: 60 MILLIGRAM

REACTIONS (7)
  - Platelet count decreased [Not Recovered/Not Resolved]
  - Asthenia [Not Recovered/Not Resolved]
  - Nausea [Not Recovered/Not Resolved]
  - Decreased appetite [Not Recovered/Not Resolved]
  - Pain in extremity [Not Recovered/Not Resolved]
  - Rash [Not Recovered/Not Resolved]
  - Alopecia [Not Recovered/Not Resolved]

NARRATIVE: CASE EVENT DATE: 20251103
